FAERS Safety Report 18691283 (Version 2)
Quarter: 2021Q1

REPORT INFORMATION
  Report Type: Spontaneous
  Country: DE (occurrence: DE)
  Receive Date: 20210101
  Receipt Date: 20210111
  Transmission Date: 20210419
  Serious: Yes (Other)
  Sender: FDA-Public Use
  Company Number: DE-ROCHE-2742586

PATIENT
  Age: 72 Year
  Sex: Male
  Weight: 80 kg

DRUGS (2)
  1. ULTRAVIST [Concomitant]
     Active Substance: IOPROMIDE
     Indication: COMPUTERISED TOMOGRAM HEAD
  2. ACTILYSE [Suspect]
     Active Substance: ALTEPLASE
     Indication: PRODUCT USED FOR UNKNOWN INDICATION
     Route: 042
     Dates: start: 20180529, end: 20180529

REACTIONS (6)
  - General physical condition abnormal [Recovered/Resolved]
  - Atrial fibrillation [Recovered/Resolved]
  - Drug dispensed to wrong patient [Unknown]
  - Mobility decreased [Recovering/Resolving]
  - Monoplegia [Recovering/Resolving]
  - Cerebrovascular accident [Recovered/Resolved]

NARRATIVE: CASE EVENT DATE: 20180529
